FAERS Safety Report 6616704-6 (Version None)
Quarter: 2010Q1

REPORT INFORMATION
  Report Type: 
  Country: None (occurrence: None)
  Receive Date: 20100305
  Receipt Date: 20100223
  Transmission Date: 20100710
  Serious: Yes (Other)
  Sender: FDA-Public Use
  Company Number: US-ABBOTT-10P-163-0628499-00

PATIENT
  Sex: Female
  Weight: 52.664 kg

DRUGS (2)
  1. HUMIRA [Suspect]
     Indication: RHEUMATOID ARTHRITIS
     Dates: start: 20080101
  2. HUMIRA [Suspect]

REACTIONS (6)
  - CONCUSSION [None]
  - DIZZINESS [None]
  - FALL [None]
  - INFLUENZA [None]
  - SINUSITIS [None]
  - SKIN LACERATION [None]
